FAERS Safety Report 7343661-X (Version None)
Quarter: 2011Q1

REPORT INFORMATION
  Report Type: 
  Country: None (occurrence: None)
  Receive Date: 20110310
  Receipt Date: 20100916
  Transmission Date: 20110831
  Serious: No
  Sender: FDA-Public Use
  Company Number: A0881569A

PATIENT
  Age: 50 Year
  Sex: Male

DRUGS (3)
  1. NICORETTE [Suspect]
  2. NICORETTE [Suspect]
  3. NICOTINE POLACRILEX [Suspect]
     Dates: start: 20100916

REACTIONS (4)
  - PRODUCT QUALITY ISSUE [None]
  - MALAISE [None]
  - ABDOMINAL PAIN UPPER [None]
  - INTENTIONAL DRUG MISUSE [None]
